FAERS Safety Report 8347472-8 (Version None)
Quarter: 2012Q1

REPORT INFORMATION
  Report Type: 
  Country: None (occurrence: None)
  Receive Date: 20120315
  Receipt Date: 20110509
  Transmission Date: 20120608
  Serious: No
  Sender: FDA-Public Use
  Company Number: PHHY2011US34385

PATIENT
  Age: 37 Year
  Sex: Female

DRUGS (4)
  1. PRISTIQ [Concomitant]
  2. GILENYA [Suspect]
     Indication: MULTIPLE SCLEROSIS
     Dosage: 0.5 MG, QD, ORAL
     Route: 048
     Dates: start: 20101209
  3. NUVIGIL [Concomitant]
  4. MELOXICAM [Concomitant]

REACTIONS (1)
  - EYE SWELLING [None]
